FAERS Safety Report 15109096 (Version 1)
Quarter: 2018Q3

REPORT INFORMATION
  Report Type: Spontaneous
  Country: IT (occurrence: IT)
  Receive Date: 20180705
  Receipt Date: 20180705
  Transmission Date: 20181010
  Serious: Yes (Other)
  Sender: FDA-Public Use
  Company Number: IT-AUROBINDO-AUR-APL-2018-033597

PATIENT
  Age: 42 Year
  Sex: Female

DRUGS (1)
  1. PARACETAMOL [Suspect]
     Active Substance: ACETAMINOPHEN
     Indication: HEADACHE
     Dosage: 1 GRAM, AS NECESSARY
     Route: 048
     Dates: start: 20180426, end: 20180430

REACTIONS (2)
  - Headache [Recovering/Resolving]
  - Drug ineffective [Recovering/Resolving]

NARRATIVE: CASE EVENT DATE: 20180430
